FAERS Safety Report 8881276 (Version 1)
Quarter: 2012Q4

REPORT INFORMATION
  Report Type: 
  Country: US (occurrence: US)
  Receive Date: 20121031
  Receipt Date: 20121031
  Transmission Date: 20130627
  Serious: Yes (Other)
  Sender: FDA-Public Use
  Company Number: US-ELI_LILLY_AND_COMPANY-US201210005940

PATIENT
  Age: 58 Year
  Sex: Female

DRUGS (3)
  1. FORTEO [Suspect]
     Indication: OSTEOPOROSIS
     Dosage: UNK
     Dates: start: 200902, end: 201005
  2. COUMADIN [Concomitant]
  3. CLOMAX                             /00116802/ [Concomitant]
     Indication: BLADDER DISORDER

REACTIONS (5)
  - Lower limb fracture [Unknown]
  - Fall [Unknown]
  - Dizziness [Recovered/Resolved]
  - Fall [Not Recovered/Not Resolved]
  - Dizziness [Recovered/Resolved]
